FAERS Safety Report 9165207 (Version 2)
Quarter: 2013Q1

REPORT INFORMATION
  Report Type: Spontaneous
  Country: AU (occurrence: None)
  Receive Date: 20130228
  Receipt Date: 20130311
  Transmission Date: 20140127
  Serious: Yes (Hospitalization)
  Sender: FDA-Public Use
  Company Number: ACO_34378_2013

PATIENT
  Age: 40 Year
  Sex: Male

DRUGS (3)
  1. FAMPRIDINE-SR (FAMPRIDINE) TABLET [Suspect]
     Indication: MULTIPLE SCLEROSIS
     Dates: start: 20120502, end: 20130214
  2. TYSABRI (NATALIZUMAB) [Concomitant]
  3. SIFROL (PRAMIPEXOLE DIHYDROCHLORIDE) [Concomitant]

REACTIONS (4)
  - Penile prosthesis insertion [None]
  - Discomfort [None]
  - Drug dose omission [None]
  - Post procedural complication [None]
